FAERS Safety Report 5945897-9 (Version None)
Quarter: 2008Q4

REPORT INFORMATION
  Report Type: 
  Country: None (occurrence: None)
  Receive Date: 20081110
  Receipt Date: 20081103
  Transmission Date: 20090506
  Serious: Yes (Other)
  Sender: FDA-Public Use
  Company Number: BR-JNJFOC-20081101085

PATIENT
  Sex: Female
  Weight: 62 kg

DRUGS (5)
  1. ORTHO EVRA [Suspect]
     Indication: MENSTRUAL DISORDER
     Route: 062
  2. ORTHO EVRA [Suspect]
     Indication: CONTRACEPTION
     Dosage: ETHINYL ESTRADIOL 0.6MG/NORELGESTROMIN 6MG
     Route: 062
  3. CITALOPRAM HYDROBROMIDE [Concomitant]
     Indication: DEPRESSION
     Route: 048
  4. RIVOTRIL [Concomitant]
     Indication: DEPRESSION
     Route: 048
  5. LORAZEPAM [Concomitant]
     Indication: DEPRESSION
     Route: 048

REACTIONS (5)
  - ANAEMIA [None]
  - DRUG ADMINISTERED AT INAPPROPRIATE SITE [None]
  - OFF LABEL USE [None]
  - PRODUCT QUALITY ISSUE [None]
  - WRONG TECHNIQUE IN DRUG USAGE PROCESS [None]
